FAERS Safety Report 4555940-X (Version None)
Quarter: 2005Q1

REPORT INFORMATION
  Report Type: 
  Country: None (occurrence: None)
  Receive Date: 20050119
  Receipt Date: 20050104
  Transmission Date: 20050727
  Serious: Yes (Hospitalization)
  Sender: FDA-Public Use
  Company Number: TW-MERCK-0501TWN00009

PATIENT
  Age: 48 Year
  Sex: Female

DRUGS (8)
  1. PRIMAXIN [Suspect]
     Indication: ANTI-INFECTIVE THERAPY
     Route: 041
     Dates: start: 20021101, end: 20021101
  2. PRIMAXIN [Suspect]
     Route: 041
     Dates: start: 20021201, end: 20021201
  3. PRIMAXIN [Suspect]
     Route: 041
     Dates: start: 20030301, end: 20030301
  4. PRIMAXIN [Suspect]
     Route: 041
     Dates: start: 20030301, end: 20030301
  5. PRIMAXIN [Suspect]
     Route: 041
     Dates: start: 20030601, end: 20030601
  6. CIPROFLOXACIN [Concomitant]
     Indication: ANTI-INFECTIVE THERAPY
     Route: 065
  7. CIPROFLOXACIN [Concomitant]
     Route: 048
  8. CEFIXIME [Concomitant]
     Indication: ANTI-INFECTIVE THERAPY
     Route: 065

REACTIONS (6)
  - BACTERAEMIA [None]
  - ENTEROCOLITIS [None]
  - METASTASES TO BONE [None]
  - OSTEOMYELITIS [None]
  - PYREXIA [None]
  - SALMONELLOSIS [None]
